FAERS Safety Report 9928584 (Version 3)
Quarter: 2014Q1

REPORT INFORMATION
  Report Type: Spontaneous
  Country: RU (occurrence: RU)
  Receive Date: 20140227
  Receipt Date: 20140317
  Transmission Date: 20141002
  Serious: Yes (Other)
  Sender: FDA-Public Use
  Company Number: RU-BAYER-2014-024655

PATIENT
  Age: 26 Year
  Sex: Female

DRUGS (3)
  1. YARINA [Suspect]
     Dosage: UNK
     Dates: start: 2007, end: 2007
  2. JEANINE [Suspect]
     Dosage: UNK
     Dates: start: 2007, end: 2009
  3. YAZ PLUS [Suspect]
     Dosage: UNK
     Dates: start: 2012

REACTIONS (17)
  - Transverse sinus thrombosis [None]
  - Dizziness [None]
  - Mood altered [None]
  - Dizziness [None]
  - Tinnitus [None]
  - Panic attack [None]
  - Dizziness [None]
  - Headache [None]
  - Cerebrovascular disorder [None]
  - Tremor [None]
  - Blood pressure systolic increased [None]
  - Dysuria [None]
  - Pollakiuria [None]
  - Osteochondrosis [None]
  - Angiogram cerebral abnormal [None]
  - Intervertebral disc protrusion [None]
  - Kyphosis [None]
